FAERS Safety Report 5303348-1 (Version None)
Quarter: 2007Q2

REPORT INFORMATION
  Report Type: 
  Country: None (occurrence: None)
  Receive Date: 20070420
  Receipt Date: 20070411
  Transmission Date: 20071010
  Serious: No
  Sender: FDA-Public Use
  Company Number: TR-BAXTER-2007BH003362

PATIENT
  Sex: Female
  Weight: 65 kg

DRUGS (2)
  1. SODIUM CHLORIDE 0.9% IN PLASTIC CONTAINER [Suspect]
     Indication: ANAEMIA
     Dosage: DOSE UNIT:CUBIC CENTIMETER
     Route: 042
     Dates: start: 20070310, end: 20070310
  2. VENOFER AMPULE [Concomitant]
     Route: 042

REACTIONS (3)
  - CHILLS [None]
  - HYPERSENSITIVITY [None]
  - PYREXIA [None]
